FAERS Safety Report 19823500 (Version 1)
Quarter: 2021Q3

REPORT INFORMATION
  Report Type: Spontaneous
  Country: DE (occurrence: DE)
  Receive Date: 20210913
  Receipt Date: 20210913
  Transmission Date: 20211014
  Serious: Yes (Hospitalization)
  Sender: FDA-Public Use
  Company Number: DE-TEVA-2021-DE-1951473

PATIENT
  Age: 78 Year
  Sex: Male

DRUGS (7)
  1. AMPHOTERICIN B. [Concomitant]
     Active Substance: AMPHOTERICIN B
     Dosage: 400 MILLIGRAM DAILY; 100 MG, 1?1?1?1, SUS
     Route: 048
  2. SPIRONOLACTON [Suspect]
     Active Substance: SPIRONOLACTONE
     Dosage: .5 DOSAGE FORMS DAILY; 50 MG, 0.5?0?0?0
     Route: 048
  3. RAMIPRIL. [Concomitant]
     Active Substance: RAMIPRIL
     Dosage: 10 MILLIGRAM DAILY; 1?0?1?0,
     Route: 048
  4. AMOXICILLIN/CLAVULANSAURE [Suspect]
     Active Substance: AMOXICILLIN\CLAVULANATE POTASSIUM
     Dosage: 2 DOSAGE FORMS DAILY; 875|125 MG, 1?0?1?0
     Route: 048
  5. SORAFENIB [Suspect]
     Active Substance: SORAFENIB
     Route: 048
  6. ALLOPURINOL. [Suspect]
     Active Substance: ALLOPURINOL
     Dosage: 100 MILLIGRAM DAILY; 1?0?0?0
     Route: 048
  7. TINZAPARIN [Concomitant]
     Active Substance: TINZAPARIN
     Dosage: 18000 IU (INTERNATIONAL UNIT) DAILY; 18000 IU, 0?0?1?0, PRE?FILLED SYRINGES
     Route: 058

REACTIONS (7)
  - Pain [Recovering/Resolving]
  - Dyspnoea [Recovering/Resolving]
  - General physical health deterioration [Recovering/Resolving]
  - Rash [Recovering/Resolving]
  - Pruritus [Recovering/Resolving]
  - Dysphagia [Recovering/Resolving]
  - Condition aggravated [Recovering/Resolving]
